FAERS Safety Report 6888069-6 (Version None)
Quarter: 2010Q3

REPORT INFORMATION
  Report Type: 
  Country: None (occurrence: None)
  Receive Date: 20100730
  Receipt Date: 20100721
  Transmission Date: 20110219
  Serious: Yes (Hospitalization)
  Sender: FDA-Public Use
  Company Number: US-JNJFOC-20100707526

PATIENT
  Sex: Female
  Weight: 56.5 kg

DRUGS (7)
  1. REMICADE [Suspect]
     Indication: COLITIS ULCERATIVE
     Route: 042
  2. PREDNISONE [Concomitant]
  3. LANSOPRAZOLE [Concomitant]
  4. MULTIPLE VITAMIN [Concomitant]
  5. OMEPRAZOLE [Concomitant]
  6. CHOLECALCIFEROL [Concomitant]
  7. 5-AMINOSALICYLIC ACID [Concomitant]
     Route: 054

REACTIONS (1)
  - COLITIS ULCERATIVE [None]
